FAERS Safety Report 13799297 (Version 1)
Quarter: 2017Q3

REPORT INFORMATION
  Report Type: Spontaneous
  Country: US (occurrence: US)
  Receive Date: 20170727
  Receipt Date: 20170727
  Transmission Date: 20171127
  Serious: Yes (Hospitalization)
  Sender: FDA-Public Use
  Company Number: None

PATIENT
  Age: 39 Year
  Sex: Female
  Weight: 61 kg

DRUGS (1)
  1. MEMANTINE HYDROCHLORIDE (102290) [Suspect]
     Active Substance: MEMANTINE HYDROCHLORIDE
     Dates: end: 20170711

REACTIONS (4)
  - Pericardial effusion [None]
  - Condition aggravated [None]
  - Chills [None]
  - Pyrexia [None]

NARRATIVE: CASE EVENT DATE: 20170711
